FAERS Safety Report 13525172 (Version 1)
Quarter: 2017Q2

REPORT INFORMATION
  Report Type: Spontaneous
  Country: US (occurrence: US)
  Receive Date: 20170508
  Receipt Date: 20170508
  Transmission Date: 20170830
  Serious: No
  Sender: FDA-Public Use
  Company Number: US-ROCHE-1124734

PATIENT
  Sex: Female

DRUGS (9)
  1. AVASTIN [Suspect]
     Active Substance: BEVACIZUMAB
     Indication: BREAST CANCER FEMALE
     Route: 065
  2. TAXOTERE [Concomitant]
     Active Substance: DOCETAXEL
  3. TAMOXIFEN [Concomitant]
     Active Substance: TAMOXIFEN
  4. TAXANE NOS [Concomitant]
     Active Substance: UNSPECIFIED INGREDIENT
  5. TAXOL [Concomitant]
     Active Substance: PACLITAXEL
  6. FEMARA [Concomitant]
     Active Substance: LETROZOLE
  7. NAVELBINE [Concomitant]
     Active Substance: VINORELBINE TARTRATE
  8. AVASTIN [Suspect]
     Active Substance: BEVACIZUMAB
     Route: 065
     Dates: start: 20051103
  9. XELODA [Concomitant]
     Active Substance: CAPECITABINE

REACTIONS (2)
  - Hepatic lesion [Unknown]
  - Disease progression [Unknown]
